FAERS Safety Report 10364172 (Version 2)
Quarter: 2014Q3

REPORT INFORMATION
  Report Type: Spontaneous
  Country: CN (occurrence: CN)
  Receive Date: 20140806
  Receipt Date: 20140828
  Transmission Date: 20150326
  Serious: Yes (Hospitalization)
  Sender: FDA-Public Use
  Company Number: CN-ROCHE-1444856

PATIENT
  Age: 6 Year
  Sex: Female

DRUGS (3)
  1. ROCEPHIN [Suspect]
     Active Substance: CEFTRIAXONE SODIUM
     Route: 065
     Dates: start: 20140706, end: 20140710
  2. METRONIDAZOLE. [Suspect]
     Active Substance: METRONIDAZOLE
     Indication: INFLAMMATION
     Route: 065
     Dates: start: 20140624
  3. ROCEPHIN [Suspect]
     Active Substance: CEFTRIAXONE SODIUM
     Indication: INFLAMMATION
     Route: 065
     Dates: start: 20140624, end: 20140704

REACTIONS (3)
  - Wound abscess [Recovering/Resolving]
  - Drug ineffective [Unknown]
  - Pyrexia [Recovering/Resolving]
